FAERS Safety Report 14907521 (Version 1)
Quarter: 2018Q2

REPORT INFORMATION
  Report Type: Spontaneous
  Country: CN (occurrence: CN)
  Receive Date: 20180517
  Receipt Date: 20180517
  Transmission Date: 20180711
  Serious: Yes (Death)
  Sender: FDA-Public Use
  Company Number: CN-STRIDES ARCOLAB LIMITED-2018SP003682

PATIENT

DRUGS (10)
  1. CYCLOSPORIN A [Suspect]
     Active Substance: CYCLOSPORINE
     Dosage: UNK
     Route: 048
  2. BUSULFAN. [Suspect]
     Active Substance: BUSULFAN
     Indication: ACUTE MYELOID LEUKAEMIA
     Dosage: 3.2 MG/KG/DAY, FROM PRE-TRANSPLANT DAY 10 TO 8
     Route: 042
  3. CYCLOPHOSPHAMIDE. [Suspect]
     Active Substance: CYCLOPHOSPHAMIDE
     Indication: ACUTE MYELOID LEUKAEMIA
     Dosage: 60 MG/KG/DAY, PRE-TRANSPLANT ON DAY 4 AND DAY 3
     Route: 065
  4. CYCLOSPORIN A [Suspect]
     Active Substance: CYCLOSPORINE
     Indication: PROPHYLAXIS AGAINST GRAFT VERSUS HOST DISEASE
     Dosage: 3 MG/KG, EVERY 12 HRS, FROM POST-TRANSPLANT DAY 9
     Route: 042
  5. CARMUSTINE [Suspect]
     Active Substance: CARMUSTINE
     Indication: ACUTE MYELOID LEUKAEMIA
     Dosage: 250 MG/M2, UNKNOWN, ON PRE-TRANSPLANT DAY 5
     Route: 065
  6. METHOTREXATE. [Suspect]
     Active Substance: METHOTREXATE
     Indication: PROPHYLAXIS AGAINST GRAFT VERSUS HOST DISEASE
     Dosage: 15 MG/M2, UNKNOWN, ON POST-TRANSPLANT DAY 1
     Route: 065
  7. METHOTREXATE. [Suspect]
     Active Substance: METHOTREXATE
     Dosage: 10 MG/M2, UNKNOWN, ON POST-TRANSPLANT DAYS 3, 6 AND 11
     Route: 065
  8. CYTARABINE. [Suspect]
     Active Substance: CYTARABINE
     Indication: ACUTE MYELOID LEUKAEMIA
     Dosage: 4 G/M2/DAY, PRE-TRANSPLANT ON DAY 7 AND DAY 6
     Route: 065
  9. MYCOPHENOLATE MOFETIL. [Suspect]
     Active Substance: MYCOPHENOLATE MOFETIL
     Indication: PROPHYLAXIS AGAINST GRAFT VERSUS HOST DISEASE
     Dosage: 0.5 G, EVERY 12 HRS, FROM POST-TRANSPLANT DAY 9
     Route: 048
  10. THYMOGLOBULINE [Suspect]
     Active Substance: LAPINE T-LYMPHOCYTE IMMUNE GLOBULIN
     Indication: ACUTE MYELOID LEUKAEMIA
     Dosage: 2.5 MG/KG/DAY, FROM PRE-TRANSPLANT DAYS 5 TO 2
     Route: 065

REACTIONS (3)
  - Infection [Fatal]
  - Pulmonary alveolar haemorrhage [Fatal]
  - Off label use [Unknown]
